FAERS Safety Report 4710029-1 (Version None)
Quarter: 2005Q3

REPORT INFORMATION
  Report Type: 
  Country: None (occurrence: None)
  Receive Date: 20050708
  Receipt Date: 20050614
  Transmission Date: 20060218
  Serious: Yes (Other)
  Sender: FDA-Public Use
  Company Number: PHEH2005US06752

PATIENT
  Sex: Female

DRUGS (5)
  1. ZOMETA [Suspect]
     Indication: BREAST CANCER METASTATIC
     Dosage: 4MG MONTHLY
     Dates: start: 20021127, end: 20050221
  2. PRILOSEC [Concomitant]
     Indication: PEPTIC ULCER
     Dosage: 20MG UNK
  3. COUMADIN [Concomitant]
  4. TYLENOL NO.2 [Concomitant]
  5. ADVAIR DISKUS 100/50 [Concomitant]

REACTIONS (2)
  - HAEMATURIA [None]
  - NEPHROLITHIASIS [None]
